FAERS Safety Report 7052834-5 (Version None)
Quarter: 2010Q4

REPORT INFORMATION
  Report Type: 
  Country: None (occurrence: None)
  Receive Date: 20101008
  Receipt Date: 20100928
  Transmission Date: 20110411
  Serious: Yes (Hospitalization)
  Sender: FDA-Public Use
  Company Number: TH-JNJFOC-20090304758

PATIENT
  Age: 25 Year
  Sex: Male
  Weight: 68 kg

DRUGS (1)
  1. DECITABINE (DECITABINE) LYOPHILIZED [Suspect]
     Indication: MYELODYSPLASTIC SYNDROME
     Dosage: 20 MG/M2, INTRAVENOUS
     Route: 042

REACTIONS (2)
  - ANAL ABSCESS [None]
  - PYREXIA [None]
